FAERS Safety Report 8704682 (Version 2)
Quarter: 2012Q4

REPORT INFORMATION
  Report Type: 
  Country: DE (occurrence: DE)
  Receive Date: 20120803
  Receipt Date: 20121121
  Transmission Date: 20130627
  Serious: Yes (Death, Hospitalization, Other)
  Sender: FDA-Public Use
  Company Number: DE-ACTELION-A-CH2012-69145

PATIENT
  Age: 85 Year
  Sex: Male
  Weight: 75 kg

DRUGS (9)
  1. TRACLEER [Suspect]
     Indication: PULMONARY ARTERIAL HYPERTENSION
     Dosage: 125 mg, bid
     Route: 048
     Dates: start: 20120925
  2. TRACLEER [Suspect]
     Dosage: 62.5 mg, bid
     Route: 048
     Dates: start: 20120620
  3. CONCOR [Concomitant]
  4. RAMIPRIL [Concomitant]
  5. TOREM [Concomitant]
  6. ALDACTONE [Concomitant]
  7. PRAVASTATIN [Concomitant]
  8. PREDNISOLON [Concomitant]
  9. NITRENDIPIN [Concomitant]

REACTIONS (16)
  - Pulmonary arterial hypertension [Fatal]
  - Condition aggravated [Fatal]
  - Interstitial lung disease [Not Recovered/Not Resolved]
  - Dyspnoea [Not Recovered/Not Resolved]
  - Atrial fibrillation [Unknown]
  - Atrioventricular block complete [Unknown]
  - Cardiac pacemaker insertion [Unknown]
  - Convulsion [Unknown]
  - Speech disorder [Unknown]
  - Syncope [Unknown]
  - Brain natriuretic peptide increased [None]
  - C-reactive protein increased [None]
  - Diastolic dysfunction [None]
  - Pulmonary fibrosis [None]
  - Tracheobronchitis [None]
  - General physical health deterioration [None]
